FAERS Safety Report 19377496 (Version 1)
Quarter: 2021Q2

REPORT INFORMATION
  Report Type: Report from Study
  Country: ES (occurrence: ES)
  Receive Date: 20210605
  Receipt Date: 20210605
  Transmission Date: 20210717
  Serious: Yes (Hospitalization, Other)
  Sender: FDA-Public Use
  Company Number: ES-TAKEDA-2021TUS034677

PATIENT
  Age: 1 Year
  Sex: Male

DRUGS (12)
  1. TEDUGLUTIDE [Suspect]
     Active Substance: TEDUGLUTIDE
     Dosage: 0.4 MILLIGRAM, (0.06MG/KG), QD
     Route: 065
     Dates: start: 20210405
  2. VITAMIN K [Concomitant]
     Active Substance: PHYTONADIONE
     Dosage: 5.0 MILLIGRAM, TID
     Route: 058
     Dates: start: 20201211
  3. TEDUGLUTIDE [Suspect]
     Active Substance: TEDUGLUTIDE
     Indication: PRODUCT USED FOR UNKNOWN INDICATION
     Dosage: 0.4 MILLIGRAM, (0.05MG/KG), QD
     Route: 065
     Dates: start: 20201106, end: 20210405
  4. TEDUGLUTIDE [Suspect]
     Active Substance: TEDUGLUTIDE
     Dosage: 0.4 MILLIGRAM, (0.06MG/KG), QD
     Route: 065
     Dates: start: 20210405
  5. BETAMETHASONE. [Concomitant]
     Active Substance: BETAMETHASONE
     Dosage: 1 APPLICATION, QD
     Route: 061
     Dates: start: 20210412
  6. TEDUGLUTIDE [Suspect]
     Active Substance: TEDUGLUTIDE
     Indication: PRODUCT USED FOR UNKNOWN INDICATION
     Dosage: 0.4 MILLIGRAM, (0.05MG/KG), QD
     Route: 065
     Dates: start: 20201106, end: 20210405
  7. TEDUGLUTIDE [Suspect]
     Active Substance: TEDUGLUTIDE
     Dosage: 0.4 MILLIGRAM, (0.06MG/KG), QD
     Route: 065
     Dates: start: 20210405
  8. VITAMIN A [Concomitant]
     Active Substance: VITAMIN A
     Dosage: 2500 INTERNATIONAL UNIT, 3/WEEK
     Route: 048
     Dates: start: 20201211
  9. TEDUGLUTIDE [Suspect]
     Active Substance: TEDUGLUTIDE
     Indication: PRODUCT USED FOR UNKNOWN INDICATION
     Dosage: 0.4 MILLIGRAM, (0.05MG/KG), QD
     Route: 065
     Dates: start: 20201106, end: 20210405
  10. TEDUGLUTIDE [Suspect]
     Active Substance: TEDUGLUTIDE
     Dosage: 0.4 MILLIGRAM, (0.06MG/KG), QD
     Route: 065
     Dates: start: 20210405
  11. SALVACOLINA [Concomitant]
     Dosage: 0.20 MILLIGRAM, TID
     Route: 048
     Dates: start: 20201211
  12. TEDUGLUTIDE [Suspect]
     Active Substance: TEDUGLUTIDE
     Indication: PRODUCT USED FOR UNKNOWN INDICATION
     Dosage: 0.4 MILLIGRAM, (0.05MG/KG), QD
     Route: 065
     Dates: start: 20201106, end: 20210405

REACTIONS (1)
  - Lactic acidosis [Recovered/Resolved]

NARRATIVE: CASE EVENT DATE: 20210112
